FAERS Safety Report 26068154 (Version 1)
Quarter: 2025Q4

REPORT INFORMATION
  Report Type: Spontaneous
  Country: SA (occurrence: None)
  Receive Date: 20251120
  Receipt Date: 20251120
  Transmission Date: 20260117
  Serious: Yes (Hospitalization)
  Sender: UCB
  Company Number: SA-UCBSA-2025073015

PATIENT
  Age: 71 Year
  Weight: 71 kg

DRUGS (1)
  1. CIMZIA [Suspect]
     Active Substance: CERTOLIZUMAB PEGOL
     Indication: Rheumatoid arthritis
     Dosage: 200 MILLIGRAM, EV 2 WEEKS(QOW)

REACTIONS (1)
  - Herpes zoster [Recovered/Resolved]
